FAERS Safety Report 6785298-7 (Version None)
Quarter: 2010Q2

REPORT INFORMATION
  Report Type: 
  Country: None (occurrence: None)
  Receive Date: 20100623
  Receipt Date: 20100614
  Transmission Date: 20101027
  Serious: Yes (Hospitalization)
  Sender: FDA-Public Use
  Company Number: US-BIOGENIDEC-2010BI012675

PATIENT
  Age: 36 Year
  Sex: Female

DRUGS (1)
  1. TYSABRI [Suspect]
     Indication: MULTIPLE SCLEROSIS
     Route: 042
     Dates: start: 20100122

REACTIONS (8)
  - ABASIA [None]
  - CHOLELITHIASIS [None]
  - GASTROINTESTINAL ULCER HAEMORRHAGE [None]
  - HEPATITIS ACUTE [None]
  - HYPOMAGNESAEMIA [None]
  - HYPOPHOSPHATAEMIA [None]
  - MULTIPLE SCLEROSIS RELAPSE [None]
  - PANCREATITIS ACUTE [None]
